FAERS Safety Report 23032284 (Version 1)
Quarter: 2023Q4

REPORT INFORMATION
  Report Type: Report from Study
  Country: US (occurrence: US)
  Receive Date: 20231005
  Receipt Date: 20231005
  Transmission Date: 20240110
  Serious: Yes (Hospitalization)
  Sender: FDA-Public Use
  Company Number: US-ABBVIE-5434829

PATIENT
  Sex: Male

DRUGS (1)
  1. HUMIRA [Suspect]
     Active Substance: ADALIMUMAB
     Indication: Colitis ulcerative
     Dosage: CITRATE FREE, FORM STRENGTH 40 MILLIGRAMS
     Route: 058
     Dates: start: 20230919, end: 20231002

REACTIONS (2)
  - Heart rate decreased [Unknown]
  - Lethargy [Unknown]

NARRATIVE: CASE EVENT DATE: 20230101
